FAERS Safety Report 8130038-2 (Version None)
Quarter: 2012Q1

REPORT INFORMATION
  Report Type: 
  Country: None (occurrence: None)
  Receive Date: 20120210
  Receipt Date: 20120119
  Transmission Date: 20120608
  Serious: Yes (Life-Threatening, Hospitalization, Other)
  Sender: FDA-Public Use
  Company Number: HR-PFIZER INC-2011127138

PATIENT
  Age: 75 Year
  Sex: Male

DRUGS (3)
  1. ESTRACYT [Interacting]
     Dosage: 140 MG, 4X/DAY
     Route: 048
     Dates: start: 20080101
  2. ALTACE [Suspect]
     Dosage: 5 MG, 1X/DAY
     Route: 048
     Dates: start: 20040101
  3. LACIDIPINE [Interacting]
     Indication: HYPERTENSION
     Dosage: 4 MG, 1X/DAY
     Route: 048
     Dates: start: 20040101

REACTIONS (8)
  - PHARYNGEAL OEDEMA [None]
  - BLOOD GLUCOSE INCREASED [None]
  - BLOOD CREATININE INCREASED [None]
  - LARYNGEAL OEDEMA [None]
  - ASPHYXIA [None]
  - RED BLOOD CELL SEDIMENTATION RATE INCREASED [None]
  - DRUG INTERACTION [None]
  - TONGUE OEDEMA [None]
